FAERS Safety Report 10092074 (Version 2)
Quarter: 2014Q2

REPORT INFORMATION
  Report Type: Spontaneous
  Country: US (occurrence: US)
  Receive Date: 20140421
  Receipt Date: 20140421
  Transmission Date: 20141212
  Serious: No
  Sender: FDA-Public Use
  Company Number: US-GILEAD-2013-0072002

PATIENT
  Sex: Male

DRUGS (3)
  1. LETAIRIS [Suspect]
     Indication: PULMONARY HYPERTENSION
     Dosage: 5 MG, QD
     Dates: start: 20121218
  2. LETAIRIS [Suspect]
     Indication: UNEVALUABLE EVENT
  3. ADCIRCA [Concomitant]

REACTIONS (4)
  - Erythema [Unknown]
  - Presyncope [Unknown]
  - Headache [Unknown]
  - Flushing [Unknown]
